FAERS Safety Report 8974250 (Version 1)
Quarter: 2012Q4

REPORT INFORMATION
  Report Type: Spontaneous
  Country: US (occurrence: None)
  Receive Date: 20121217
  Receipt Date: 20121217
  Transmission Date: 20130627
  Serious: Yes (Hospitalization)
  Sender: FDA-Public Use
  Company Number: None

PATIENT
  Age: 66 Year
  Sex: Male
  Weight: 45.45 kg

DRUGS (7)
  1. XARELTO (RIVAROXABAN) [Suspect]
     Indication: AFIB
     Dosage: Duration Less Than 6 Months
  2. AMLODIPINE [Concomitant]
  3. DILTIAZEM [Concomitant]
  4. VICODIN [Concomitant]
  5. MORPINE [Concomitant]
  6. ONDANSETRON [Concomitant]
  7. TIMOLOL [Concomitant]

REACTIONS (2)
  - Renal failure acute [None]
  - Hyperkalaemia [None]
